FAERS Safety Report 6249536-1 (Version None)
Quarter: 2009Q2

REPORT INFORMATION
  Report Type: 
  Country: None (occurrence: None)
  Receive Date: 20090625
  Receipt Date: 20090625
  Transmission Date: 20091009
  Serious: No
  Sender: FDA-Public Use
  Company Number: None

PATIENT
  Sex: Female
  Weight: 61.2356 kg

DRUGS (1)
  1. ZICAM COLD REMEDY GEL SWABS ZINCUM GLUCONICUM 2X ZICAM LLC [Suspect]
     Indication: NASOPHARYNGITIS
     Dosage: ONE TUBE EVERY FOUR HOURS NASAL
     Route: 045
     Dates: start: 20080521, end: 20080526

REACTIONS (3)
  - AGEUSIA [None]
  - ANOSMIA [None]
  - NERVE INJURY [None]
